FAERS Safety Report 4365829-7 (Version None)
Quarter: 2004Q2

REPORT INFORMATION
  Report Type: 
  Country: None (occurrence: None)
  Receive Date: 20040521
  Receipt Date: 20040512
  Transmission Date: 20050107
  Serious: Yes (Death, Hospitalization)
  Sender: FDA-Public Use
  Company Number: 2004213714KW

PATIENT
  Age: 37 Year
  Sex: Male

DRUGS (9)
  1. METRONIDAZOLE [Suspect]
     Indication: ANTIBACTERIAL PROPHYLAXIS
     Dosage: 500 MG, TID, IV
     Route: 042
     Dates: start: 19971120, end: 19971122
  2. AMIKACIN [Concomitant]
  3. CEFTRIAXONE [Concomitant]
  4. MEROPENEM (MEROPENEM) [Concomitant]
  5. AMPHOTERICIN B [Concomitant]
  6. PREDNISOLONE [Concomitant]
  7. CYCLOSPORINE [Concomitant]
  8. AZATHIOPRINE [Concomitant]
  9. NIFEDIPINE [Concomitant]

REACTIONS (10)
  - ABSCESS [None]
  - BACTEROIDES INFECTION [None]
  - CANDIDIASIS [None]
  - COLON GANGRENE [None]
  - GENERAL PHYSICAL HEALTH DETERIORATION [None]
  - NECROSIS [None]
  - PANCREATITIS NECROTISING [None]
  - PATHOGEN RESISTANCE [None]
  - PEPTOSTREPTOCOCCUS INFECTION [None]
  - PSEUDOMONAS INFECTION [None]
